FAERS Safety Report 24756669 (Version 3)
Quarter: 2025Q1

REPORT INFORMATION
  Report Type: Report from Study
  Country: US (occurrence: US)
  Receive Date: 20241220
  Receipt Date: 20250322
  Transmission Date: 20250409
  Serious: Yes (Hospitalization, Other)
  Sender: UNITED THERAPEUTICS
  Company Number: US-UNITED THERAPEUTICS-UNT-2024-032880

PATIENT
  Sex: Female
  Weight: 72.109 kg

DRUGS (11)
  1. TREPROSTINIL SODIUM [Suspect]
     Active Substance: TREPROSTINIL SODIUM
     Indication: Pulmonary arterial hypertension
     Dosage: 18 ?G, QID
     Dates: start: 20241010, end: 202410
  2. TREPROSTINIL SODIUM [Suspect]
     Active Substance: TREPROSTINIL SODIUM
     Dosage: 36 ?G, QID
     Dates: start: 202410, end: 2024
  3. TREPROSTINIL SODIUM [Suspect]
     Active Substance: TREPROSTINIL SODIUM
     Dosage: 18 ?G, QID (RESTARTED)
     Dates: start: 2024
  4. TREPROSTINIL SODIUM [Suspect]
     Active Substance: TREPROSTINIL SODIUM
     Dosage: 42 ?G, QID
  5. TREPROSTINIL SODIUM [Suspect]
     Active Substance: TREPROSTINIL SODIUM
  6. NIFEDIPINE [Concomitant]
     Active Substance: NIFEDIPINE
     Indication: Product used for unknown indication
  7. MYCOPHENOLATE MOFETIL [Concomitant]
     Active Substance: MYCOPHENOLATE MOFETIL
     Indication: Product used for unknown indication
  8. SILDENAFIL CITRATE [Concomitant]
     Active Substance: SILDENAFIL CITRATE
     Indication: Product used for unknown indication
  9. OXYGEN [Concomitant]
     Active Substance: OXYGEN
     Indication: Product used for unknown indication
  10. VORICONAZOLE [Concomitant]
     Active Substance: VORICONAZOLE
     Indication: Product used for unknown indication
  11. LASIX [Concomitant]
     Active Substance: FUROSEMIDE
     Indication: Product used for unknown indication

REACTIONS (14)
  - Pericardial effusion [Unknown]
  - Pleural effusion [Unknown]
  - COVID-19 [Unknown]
  - Decreased appetite [Unknown]
  - Diarrhoea [Unknown]
  - Nausea [Unknown]
  - Dyspnoea [Unknown]
  - Vomiting [Unknown]
  - Fatigue [Unknown]
  - Cough [Unknown]
  - Dehydration [Unknown]
  - Fungal infection [Unknown]
  - Malaise [Unknown]
  - Illness [Unknown]

NARRATIVE: CASE EVENT DATE: 20240101
